FAERS Safety Report 13186342 (Version 1)
Quarter: 2017Q1

REPORT INFORMATION
  Report Type: Spontaneous
  Country: IT (occurrence: IT)
  Receive Date: 20170204
  Receipt Date: 20170204
  Transmission Date: 20170428
  Serious: Yes (Other)
  Sender: FDA-Public Use
  Company Number: IT-AMGEN-ITASP2017018515

PATIENT
  Age: 77 Year
  Sex: Male
  Weight: 70 kg

DRUGS (1)
  1. ENBREL [Suspect]
     Active Substance: ETANERCEPT
     Indication: PSORIASIS
     Dosage: 50 MG, WEEKLY
     Route: 058
     Dates: start: 20081201, end: 20161024

REACTIONS (5)
  - Red blood cell sedimentation rate increased [Unknown]
  - Hodgkin^s disease [Not Recovered/Not Resolved]
  - C-reactive protein increased [Unknown]
  - Lymphadenopathy [Not Recovered/Not Resolved]
  - Thrombocytosis [Unknown]

NARRATIVE: CASE EVENT DATE: 20161024
